FAERS Safety Report 5237869-7 (Version None)
Quarter: 2007Q1

REPORT INFORMATION
  Report Type: 
  Country: None (occurrence: None)
  Receive Date: 20070214
  Receipt Date: 20070205
  Transmission Date: 20070707
  Serious: Yes (Hospitalization)
  Sender: FDA-Public Use
  Company Number: US-SHR-US-2007-004053

PATIENT
  Age: 36 Year
  Sex: Male

DRUGS (3)
  1. BETASERON [Suspect]
     Dosage: 8 MIU, 3X/WEEK
     Route: 058
     Dates: start: 20040803
  2. DEPAKOTE [Concomitant]
  3. EFFEXOR [Concomitant]

REACTIONS (2)
  - ABASIA [None]
  - SPEECH DISORDER [None]
